FAERS Safety Report 9688998 (Version 7)
Quarter: 2014Q2

REPORT INFORMATION
  Report Type: Spontaneous
  Country: GB (occurrence: GB)
  Receive Date: 20131114
  Receipt Date: 20140416
  Transmission Date: 20141212
  Serious: Yes (Death, Hospitalization, Other)
  Sender: FDA-Public Use
  Company Number: GB-TAKEDA-2013TUS002187

PATIENT
  Age: 87 Year
  Sex: Male
  Weight: 68 kg

DRUGS (9)
  1. LANSOPRAZOLE [Suspect]
     Indication: PRODUCT USED FOR UNKNOWN INDICATION
     Dosage: UNK
  2. CLARITHROMYCIN [Suspect]
     Indication: STAPHYLOCOCCAL INFECTION
     Dosage: 500 MG, BID
     Route: 048
     Dates: start: 20121101, end: 20130211
  3. CLARITHROMYCIN [Suspect]
     Indication: OSTEOMYELITIS
  4. SIMVASTATIN [Suspect]
     Indication: HYPERCHOLESTEROLAEMIA
     Dosage: 40 MG, 1 IN 1 D
     Route: 048
     Dates: start: 2012
  5. SIMVASTATIN [Suspect]
     Dosage: 40 MG, 1 IN 1 D
     Route: 048
     Dates: end: 20130218
  6. FUSIDIC ACID [Suspect]
     Indication: STAPHYLOCOCCAL INFECTION
     Dosage: 500 MG, TID
     Route: 048
     Dates: start: 20121220, end: 20130211
  7. FUSIDIC ACID [Suspect]
     Indication: OSTEOMYELITIS
  8. ASPIRIN [Concomitant]
     Dosage: UNK
  9. LANTUS [Concomitant]
     Dosage: UNK

REACTIONS (6)
  - Rhabdomyolysis [Fatal]
  - Sepsis [Fatal]
  - Renal failure acute [Fatal]
  - Drug interaction [Unknown]
  - Incorrect drug administration duration [Unknown]
  - Medication error [Unknown]
